FAERS Safety Report 7786011-7 (Version None)
Quarter: 2011Q3

REPORT INFORMATION
  Report Type: 
  Country: None (occurrence: None)
  Receive Date: 20110929
  Receipt Date: 20110920
  Transmission Date: 20111222
  Serious: Yes (Hospitalization)
  Sender: FDA-Public Use
  Company Number: FR-MILLENNIUM PHARMACEUTICALS, INC.-2011-04168

PATIENT

DRUGS (11)
  1. ZOMETA [Concomitant]
     Indication: HYPERCALCAEMIA
     Dosage: 4 MG, UNK
     Route: 042
  2. DEXAMETHASONE [Suspect]
     Indication: MULTIPLE MYELOMA
     Dosage: 20 MG, UNK
     Route: 048
     Dates: start: 20110301, end: 20110614
  3. TRAMADOL [Concomitant]
     Indication: PAIN
     Dosage: 100 MG, UNK
     Route: 048
     Dates: start: 20110301
  4. TAMSULOSIN HCL [Concomitant]
     Dosage: 74 MG, UNK
     Route: 048
  5. ARANESP [Concomitant]
     Dosage: UNK
     Route: 058
  6. LANTUS [Concomitant]
     Indication: DIABETES MELLITUS
     Dosage: UNK
     Route: 058
     Dates: start: 20110531
  7. ASPERGIC [Concomitant]
     Dosage: 100 MG, UNK
     Route: 048
  8. REVLIMID [Concomitant]
     Indication: MULTIPLE MYELOMA
     Dosage: 25 MG, UNK
     Route: 048
     Dates: start: 20110707
  9. VELCADE [Suspect]
     Indication: MULTIPLE MYELOMA
     Dosage: 2.6 MG, UNK
     Route: 042
     Dates: start: 20110301, end: 20110614
  10. TREANDA [Suspect]
     Indication: MULTIPLE MYELOMA
     Dosage: 142 MG, UNK
     Route: 042
     Dates: start: 20110301, end: 20110616
  11. HUMALOG [Concomitant]
     Indication: DIABETES MELLITUS
     Route: 058

REACTIONS (2)
  - DUODENAL ULCER [None]
  - HAEMORRHAGE [None]
